FAERS Safety Report 8595381-1 (Version None)
Quarter: 2012Q3

REPORT INFORMATION
  Report Type: 
  Country: None (occurrence: None)
  Receive Date: 20120815
  Receipt Date: 20120619
  Transmission Date: 20120928
  Serious: No
  Sender: FDA-Public Use
  Company Number: US-BRISTOL-MYERS SQUIBB COMPANY-16533861

PATIENT

DRUGS (1)
  1. ONGLYZA [Suspect]
     Dosage: CRUSHING TABS

REACTIONS (1)
  - MEDICATION ERROR [None]
